FAERS Safety Report 10224609 (Version 1)
Quarter: 2014Q2

REPORT INFORMATION
  Report Type: Spontaneous
  Country: VN (occurrence: VN)
  Receive Date: 20140609
  Receipt Date: 20140609
  Transmission Date: 20141212
  Serious: Yes (Death)
  Sender: FDA-Public Use
  Company Number: VN-BAXTER-2014BAX029059

PATIENT
  Sex: Male

DRUGS (2)
  1. DIANEAL LOW CALCIUM (2,5MEQ.L) PERITIONEAL DIALYSIS SOLUTION WITH 1.5% [Suspect]
     Indication: PERITONEAL DIALYSIS
     Route: 033
     Dates: start: 20091225, end: 20140509
  2. DIANEAL LOW CALCIUM (2,5MEQ.L) PERITIONEAL DIALYSIS SOLUTION WITH 2.5% [Suspect]
     Indication: PERITONEAL DIALYSIS
     Route: 033
     Dates: start: 20091225, end: 20140509

REACTIONS (1)
  - Diabetic complication [Fatal]
